FAERS Safety Report 5453520-5 (Version None)
Quarter: 2007Q3

REPORT INFORMATION
  Report Type: 
  Country: None (occurrence: None)
  Receive Date: 20070913
  Receipt Date: 20070829
  Transmission Date: 20080115
  Serious: Yes (Hospitalization, Other)
  Sender: FDA-Public Use
  Company Number: 2007US-09591

PATIENT
  Age: 83 Year
  Sex: Male

DRUGS (7)
  1. ISOPTIN SR [Suspect]
     Indication: SICK SINUS SYNDROME
     Dosage: 120 MG, QD, ORAL
     Route: 048
  2. COLCHICINE ()TABLET, 1MG [Suspect]
     Indication: GOUT
     Dosage: 1MG, QD, ORAL
     Route: 048
  3. AMBROXOL [Concomitant]
  4. DICLOFENAC SODIUM [Concomitant]
  5. FUROSEMIDE TABLET (FUROSEMIDE) [Concomitant]
  6. ASPIRIN [Concomitant]
  7. THEOPHYLLINE [Concomitant]

REACTIONS (6)
  - DRUG INTERACTION INHIBITION [None]
  - DRUG LEVEL INCREASED [None]
  - GOUT [None]
  - GUILLAIN-BARRE SYNDROME [None]
  - MUSCULAR WEAKNESS [None]
  - QUADRIPARESIS [None]
